FAERS Safety Report 25061499 (Version 1)
Quarter: 2025Q1

REPORT INFORMATION
  Report Type: Spontaneous
  Country: RU (occurrence: RU)
  Receive Date: 20250311
  Receipt Date: 20250311
  Transmission Date: 20250408
  Serious: Yes (Other)
  Sender: AMGEN
  Company Number: RU-AMGEN-RUSSP2025044646

PATIENT
  Age: 42 Year
  Sex: Female

DRUGS (2)
  1. XGEVA [Suspect]
     Active Substance: DENOSUMAB
     Indication: Bone giant cell tumour
     Dosage: 120 MILLIGRAM, QMO
     Route: 058
     Dates: start: 201811
  2. XGEVA [Suspect]
     Active Substance: DENOSUMAB
     Dosage: 120 MILLIGRAM, Q3MO
     Route: 058

REACTIONS (3)
  - Cholestasis [Unknown]
  - Calculus urinary [Unknown]
  - Off label use [Unknown]
